FAERS Safety Report 8312927-9 (Version None)
Quarter: 2012Q2

REPORT INFORMATION
  Report Type: 
  Country: None (occurrence: None)
  Receive Date: 20120424
  Receipt Date: 20120327
  Transmission Date: 20120825
  Serious: Yes (Hospitalization, Disabling)
  Sender: FDA-Public Use
  Company Number: 2012ST000318

PATIENT
  Age: 19 Year
  Sex: Female
  Weight: 160 kg

DRUGS (4)
  1. ONCASPAR [Suspect]
     Indication: ACUTE LYMPHOCYTIC LEUKAEMIA
     Dosage: 4500 IU;X1; 2125 IU;X1;
     Dates: start: 20111201, end: 20111201
  2. ONCASPAR [Suspect]
     Indication: ACUTE LYMPHOCYTIC LEUKAEMIA
     Dosage: 4500 IU;X1; 2125 IU;X1;
     Dates: start: 20120117, end: 20120117
  3. ONCASPAR [Suspect]
     Indication: ACUTE LYMPHOCYTIC LEUKAEMIA
     Dosage: 4500 IU;X1; 2125 IU;X1;
     Dates: start: 20120214, end: 20120214
  4. ONCASPAR [Suspect]

REACTIONS (8)
  - HYPERTRIGLYCERIDAEMIA [None]
  - THROMBOPHLEBITIS [None]
  - PYREXIA [None]
  - AXILLARY VEIN THROMBOSIS [None]
  - VENA CAVA THROMBOSIS [None]
  - BLOOD CHOLESTEROL INCREASED [None]
  - VERY LOW DENSITY LIPOPROTEIN INCREASED [None]
  - HIGH DENSITY LIPOPROTEIN DECREASED [None]
